FAERS Safety Report 4775420-6 (Version None)
Quarter: 2005Q3

REPORT INFORMATION
  Report Type: 
  Country: None (occurrence: None)
  Receive Date: 20050921
  Receipt Date: 20050921
  Transmission Date: 20060218
  Serious: Yes (Other)
  Sender: FDA-Public Use
  Company Number: None

PATIENT
  Age: 36 Year
  Sex: Female
  Weight: 102.5129 kg

DRUGS (10)
  1. CHOLINE, MAG. SALICYLATE 750 MG [Suspect]
     Indication: ARTHRITIS
     Dosage: 1 TABLET BID PO
     Route: 048
     Dates: start: 20041008, end: 20050315
  2. CHOLINE, MAG. SALICYLATE 750 MG [Suspect]
     Indication: INFLAMMATION
     Dosage: 1 TABLET BID PO
     Route: 048
     Dates: start: 20041008, end: 20050315
  3. METHADONE HCL [Concomitant]
  4. DIAZEPAM [Concomitant]
  5. LOPERAMIDE [Concomitant]
  6. AMOXICILLIN [Concomitant]
  7. BISACODYL [Concomitant]
  8. DOCUSATE SODIUM [Concomitant]
  9. DIPHENHYDRAMINE HCL [Concomitant]
  10. LEVOFLOXACIN [Concomitant]

REACTIONS (3)
  - AMNESIA [None]
  - PERSONALITY CHANGE [None]
  - PSYCHOTIC DISORDER [None]
